FAERS Safety Report 10614991 (Version 2)
Quarter: 2014Q4

REPORT INFORMATION
  Report Type: Report from Study
  Country: CA (occurrence: CA)
  Receive Date: 20141201
  Receipt Date: 20141201
  Transmission Date: 20150529
  Serious: Yes (Other)
  Sender: FDA-Public Use
  Company Number: CA-ROCHE-1486946

PATIENT
  Age: 45 Year
  Sex: Female

DRUGS (3)
  1. VENTOLIN [Concomitant]
     Active Substance: ALBUTEROL SULFATE
     Route: 065
  2. RITUXAN [Suspect]
     Active Substance: RITUXIMAB
     Indication: IMMUNE THROMBOCYTOPENIC PURPURA
     Route: 042
     Dates: start: 20141103
  3. VITAMIN C [Concomitant]
     Active Substance: ASCORBIC ACID
     Indication: EPISTAXIS

REACTIONS (6)
  - Haemorrhage [Not Recovered/Not Resolved]
  - Off label use [Unknown]
  - Haemoglobin decreased [Unknown]
  - Sinusitis [Not Recovered/Not Resolved]
  - Infusion related reaction [Unknown]
  - Platelet count decreased [Unknown]

NARRATIVE: CASE EVENT DATE: 20141103
